FAERS Safety Report 6317916-1 (Version None)
Quarter: 2009Q3

REPORT INFORMATION
  Report Type: 
  Country: None (occurrence: None)
  Receive Date: 20090821
  Receipt Date: 20090812
  Transmission Date: 20100115
  Serious: Yes (Other)
  Sender: FDA-Public Use
  Company Number: HU-JNJFOC-20090803838

PATIENT
  Age: 20 Year
  Sex: Male

DRUGS (5)
  1. INVEGA [Suspect]
     Indication: SCHIZOPHRENIA, CATATONIC TYPE
     Route: 048
  2. RISPERDAL CONSTA [Suspect]
     Indication: AGGRESSION
     Route: 030
  3. TEGRETOL [Concomitant]
     Indication: DRUG USE FOR UNKNOWN INDICATION
  4. RIVOTRIL [Concomitant]
     Indication: DRUG USE FOR UNKNOWN INDICATION
     Dosage: 1/4-1/4-2 TABLETS (MORNING: 0.5 MG, NOON:0.5, EVENING:4 MG
  5. SEROQUEL [Concomitant]
     Indication: DRUG USE FOR UNKNOWN INDICATION

REACTIONS (3)
  - HYPERKINESIA [None]
  - MYOCLONIC EPILEPSY [None]
  - TORTICOLLIS [None]
